FAERS Safety Report 11363544 (Version 2)
Quarter: 2015Q4

REPORT INFORMATION
  Report Type: Report from Study
  Country: US (occurrence: US)
  Receive Date: 20150811
  Receipt Date: 20151118
  Transmission Date: 20160304
  Serious: Yes (Death)
  Sender: FDA-Public Use
  Company Number: US-ASTRAZENECA-2015SE75593

PATIENT
  Age: 871 Month
  Sex: Male
  Weight: 128.8 kg

DRUGS (1)
  1. SYMBICORT [Suspect]
     Active Substance: BUDESONIDE\FORMOTEROL FUMARATE DIHYDRATE
     Dosage: 160/4.5MCG TWO PUFFS TWICE DAILY
     Route: 055

REACTIONS (2)
  - Ejection fraction decreased [Fatal]
  - Cardiac disorder [Fatal]
